FAERS Safety Report 26061771 (Version 2)
Quarter: 2025Q4

REPORT INFORMATION
  Report Type: Spontaneous
  Country: GB (occurrence: GB)
  Receive Date: 20251118
  Receipt Date: 20251201
  Transmission Date: 20260117
  Serious: Yes (Life-Threatening, Other)
  Sender: AUROBINDO
  Company Number: GB-MHRA-MED-202511090358006660-NGHPB

PATIENT
  Sex: Female

DRUGS (1)
  1. OLANZAPINE [Suspect]
     Active Substance: OLANZAPINE
     Indication: Product used for unknown indication
     Dosage: UNK
     Route: 065

REACTIONS (18)
  - Brief resolved unexplained event [Not Recovered/Not Resolved]
  - Medication error [Unknown]
  - Sensory loss [Unknown]
  - Hair disorder [Unknown]
  - Psychiatric symptom [Unknown]
  - Hypokinesia [Unknown]
  - Amnesia [Unknown]
  - Feeling abnormal [Unknown]
  - Asthenia [Unknown]
  - Respiration abnormal [Unknown]
  - Muscle spasms [Unknown]
  - Teeth brittle [Unknown]
  - Cardiac disorder [Unknown]
  - Decreased appetite [Unknown]
  - Skin disorder [Unknown]
  - Sight disability [Unknown]
  - Paraesthesia [Unknown]
  - Withdrawal syndrome [Unknown]
